APPROVED DRUG PRODUCT: PROTOPAM CHLORIDE
Active Ingredient: PRALIDOXIME CHLORIDE
Strength: 1GM/VIAL
Dosage Form/Route: INJECTABLE;INJECTION
Application: N014134 | Product #001
Applicant: BAXTER HEALTHCARE CORP ANESTHESIA AND CRITICAL CARE
Approved: Approved Prior to Jan 1, 1982 | RLD: Yes | RS: Yes | Type: RX